FAERS Safety Report 6713701-7 (Version None)
Quarter: 2010Q2

REPORT INFORMATION
  Report Type: 
  Country: None (occurrence: None)
  Receive Date: 20100426
  Receipt Date: 20091130
  Transmission Date: 20101027
  Serious: Yes (Hospitalization)
  Sender: FDA-Public Use
  Company Number: 2009BI039429

PATIENT
  Age: 42 Year
  Sex: Female
  Weight: 54.4316 kg

DRUGS (11)
  1. TYSABRI [Suspect]
     Indication: SECONDARY PROGRESSIVE MULTIPLE SCLEROSIS
     Dosage: 300 MG; QM; IV
     Route: 042
     Dates: start: 20070807, end: 20091101
  2. OXYBUTYNIN (CON.) [Concomitant]
  3. ALENDRONATE (CON.) [Concomitant]
  4. ADDERALL (CON.) [Concomitant]
  5. THIOCTIC ACID (CON.) [Concomitant]
  6. CEPHALEXIN (CON.) [Concomitant]
  7. ZYRTEC (CON.) [Concomitant]
  8. ALEVE (CON.) [Concomitant]
  9. ACETYLCAMITINE (CON.) [Concomitant]
  10. COENZYME Q10 (CON.) [Concomitant]
  11. PREV MEDS [Concomitant]

REACTIONS (4)
  - DEPRESSIVE SYMPTOM [None]
  - DRY MOUTH [None]
  - FATIGUE [None]
  - URINARY TRACT INFECTION [None]
